FAERS Safety Report 19799218 (Version 2)
Quarter: 2021Q3

REPORT INFORMATION
  Report Type: Spontaneous
  Country: US (occurrence: US)
  Receive Date: 20210907
  Receipt Date: 20210930
  Transmission Date: 20211014
  Serious: No
  Sender: FDA-Public Use
  Company Number: US-PFIZER INC-202101095325

PATIENT
  Age: 54 Year
  Sex: Male
  Weight: 88.45 kg

DRUGS (2)
  1. PHENELZINE SULFATE. [Suspect]
     Active Substance: PHENELZINE SULFATE
     Dosage: 15 MG. THREE TABLETS TWICE DAY, MORNING AND EVENING FOR A TOTAL OF 90 MG DAILY BY MOUTH.
     Route: 048
     Dates: start: 20210501
  2. PHENELZINE SULFATE. [Suspect]
     Active Substance: PHENELZINE SULFATE
     Indication: DEPRESSION
     Dosage: 15 MG. THREE TABLETS TWICE DAY, MORNING AND EVENING FOR A TOTAL OF 90 MG DAILY BY MOUTH.
     Route: 048
     Dates: start: 2017

REACTIONS (4)
  - Euphoric mood [Unknown]
  - Therapeutic product effect incomplete [Unknown]
  - Nightmare [Unknown]
  - Headache [Unknown]
